FAERS Safety Report 12687296 (Version 2)
Quarter: 2016Q4

REPORT INFORMATION
  Report Type: Report from Study
  Country: US (occurrence: US)
  Receive Date: 20160826
  Receipt Date: 20161003
  Transmission Date: 20170207
  Serious: Yes (Hospitalization)
  Sender: FDA-Public Use
  Company Number: US-BIOGEN-2016BI00282430

PATIENT
  Age: 51 Year
  Sex: Male

DRUGS (1)
  1. TECFIDERA [Suspect]
     Active Substance: DIMETHYL FUMARATE
     Indication: MULTIPLE SCLEROSIS
     Route: 048
     Dates: start: 20140417

REACTIONS (6)
  - Bone contusion [Unknown]
  - Neck pain [Not Recovered/Not Resolved]
  - Contusion [Unknown]
  - Concussion [Unknown]
  - Road traffic accident [Recovered/Resolved]
  - Pulmonary contusion [Unknown]

NARRATIVE: CASE EVENT DATE: 201511
